FAERS Safety Report 19451373 (Version 1)
Quarter: 2021Q2

REPORT INFORMATION
  Report Type: Spontaneous
  Country: US (occurrence: US)
  Receive Date: 20210622
  Receipt Date: 20210622
  Transmission Date: 20210717
  Serious: No
  Sender: FDA-Public Use
  Company Number: None

PATIENT
  Sex: Male

DRUGS (1)
  1. HUMIRA [Suspect]
     Active Substance: ADALIMUMAB
     Indication: COLITIS
     Route: 058
     Dates: start: 20180103

REACTIONS (6)
  - Nausea [None]
  - Constipation [None]
  - Haematochezia [None]
  - Condition aggravated [None]
  - Fatigue [None]
  - Vomiting [None]
